FAERS Safety Report 16019934 (Version 2)
Quarter: 2019Q2

REPORT INFORMATION
  Report Type: Report from Study
  Country: US (occurrence: US)
  Receive Date: 20190228
  Receipt Date: 20190621
  Transmission Date: 20190711
  Serious: No
  Sender: FDA-Public Use
  Company Number: PHEH2019US008665

PATIENT
  Sex: Female

DRUGS (2)
  1. GILENYA [Suspect]
     Active Substance: FINGOLIMOD HYDROCHLORIDE
     Dosage: 0.5 MG, OTHER(6 DAYS A WEEK EXCEPT SUNDAY)
     Route: 048
     Dates: start: 20170310
  2. GILENYA [Suspect]
     Active Substance: FINGOLIMOD HYDROCHLORIDE
     Indication: MULTIPLE SCLEROSIS
     Dosage: 0.5 MG, OTHER (EVERY DAY EXCEPT SUNDAY)
     Route: 048
     Dates: start: 2017

REACTIONS (4)
  - White blood cell count decreased [Unknown]
  - Cognitive disorder [Unknown]
  - Underdose [Unknown]
  - Mental disorder [Unknown]
